FAERS Safety Report 5410866-4 (Version None)
Quarter: 2007Q3

REPORT INFORMATION
  Report Type: 
  Country: None (occurrence: None)
  Receive Date: 20070810
  Receipt Date: 20070808
  Transmission Date: 20080115
  Serious: Yes (Death)
  Sender: FDA-Public Use
  Company Number: PHBS2007SE13213

PATIENT
  Age: 77 Year
  Sex: Male

DRUGS (8)
  1. EXJADE [Suspect]
     Indication: IRON OVERLOAD
     Dosage: 2000 MG/D
     Route: 048
     Dates: start: 20070510, end: 20070602
  2. BLOOD TRANSFUSION, AUXILIARY PRODUCTS [Concomitant]
  3. FURIX [Concomitant]
     Dosage: 40 MG/D
     Route: 048
  4. TROMBYL [Concomitant]
     Dosage: 75 MG/D
     Route: 048
  5. METOPROLOL SUCCINATE [Concomitant]
     Dosage: 50 MG/D
  6. CYANOCOBALAMIN [Concomitant]
     Dosage: 1 MG/D
     Route: 048
  7. ALLOPURINOL [Concomitant]
     Dosage: 100 MG/D
     Route: 048
  8. ENALAPRIL MALEATE [Concomitant]
     Dosage: 10 MG/D
     Route: 048

REACTIONS (3)
  - BLOOD BILIRUBIN INCREASED [None]
  - BLOOD CREATININE INCREASED [None]
  - MYOCARDIAL INFARCTION [None]
